FAERS Safety Report 9601293 (Version 4)
Quarter: 2013Q4

REPORT INFORMATION
  Report Type: Spontaneous
  Country: BR (occurrence: BR)
  Receive Date: 20131006
  Receipt Date: 20131108
  Transmission Date: 20140711
  Serious: Yes (Other)
  Sender: FDA-Public Use
  Company Number: BR-PFIZER INC-2013280648

PATIENT
  Age: 43 Year
  Sex: Female
  Weight: 56.6 kg

DRUGS (1)
  1. TALIGLUCERASE ALFA [Suspect]
     Indication: GAUCHER^S DISEASE
     Dosage: 30 IU/KG, TWICE PER MONTH
     Route: 042
     Dates: start: 20130827, end: 20130827

REACTIONS (5)
  - Infusion related reaction [Recovered/Resolved]
  - Swelling face [Recovered/Resolved]
  - Dyspnoea [Recovered/Resolved]
  - Erythema [Recovered/Resolved]
  - Nasal congestion [Recovered/Resolved]
